FAERS Safety Report 17568763 (Version 1)
Quarter: 2020Q1

REPORT INFORMATION
  Report Type: Spontaneous
  Country: CN (occurrence: CN)
  Receive Date: 20200321
  Receipt Date: 20200321
  Transmission Date: 20200409
  Serious: Yes (Hospitalization, Other)
  Sender: FDA-Public Use
  Company Number: CN-DRREDDYS-GPV/CHN/20/0120884

PATIENT
  Age: 78 Year
  Sex: Female
  Weight: 50 kg

DRUGS (10)
  1. OLANZAPINE. [Suspect]
     Active Substance: OLANZAPINE
     Route: 048
     Dates: start: 20200202, end: 20200302
  2. ARUISI [DONEPEZIL HYDROCHLORIDE] [Suspect]
     Active Substance: DONEPEZIL HYDROCHLORIDE
     Indication: DEMENTIA ALZHEIMER^S TYPE
     Route: 048
     Dates: start: 20200102, end: 20200312
  3. PIRACETAM [Suspect]
     Active Substance: PIRACETAM
     Indication: DEMENTIA ALZHEIMER^S TYPE
     Route: 048
     Dates: start: 20200114, end: 20200304
  4. OLANZAPINE. [Suspect]
     Active Substance: OLANZAPINE
     Indication: PSYCHIATRIC SYMPTOM
     Route: 048
     Dates: start: 20200102, end: 20200202
  5. OLANZAPINE. [Suspect]
     Active Substance: OLANZAPINE
     Route: 048
     Dates: start: 20200302, end: 20200312
  6. ESCITALOPRAM OXALATE. [Suspect]
     Active Substance: ESCITALOPRAM OXALATE
     Indication: DEPRESSION
     Route: 048
     Dates: start: 20200102, end: 20200312
  7. SODIUM VALPROATE [Concomitant]
     Active Substance: VALPROATE SODIUM
     Indication: EPILEPSY
     Route: 048
     Dates: start: 20200102, end: 20200312
  8. ASPIRIN. [Suspect]
     Active Substance: ASPIRIN
     Indication: PLATELET AGGREGATION
     Route: 048
     Dates: start: 20200102, end: 20200302
  9. SHIHUIDA [Concomitant]
     Indication: BLOOD PRESSURE MEASUREMENT
     Route: 048
     Dates: start: 20200105, end: 20200312
  10. ATORVASTATIN CALCIUM. [Concomitant]
     Active Substance: ATORVASTATIN CALCIUM
     Indication: HYPERLIPIDAEMIA
     Route: 048
     Dates: start: 20200116, end: 20200302

REACTIONS (4)
  - Schizophrenia [Recovering/Resolving]
  - Decreased appetite [Recovering/Resolving]
  - Emotional distress [Recovering/Resolving]
  - Abnormal faeces [Recovering/Resolving]

NARRATIVE: CASE EVENT DATE: 20200302
